FAERS Safety Report 23668433 (Version 1)
Quarter: 2024Q1

REPORT INFORMATION
  Report Type: Spontaneous
  Country: DE (occurrence: DE)
  Receive Date: 20240325
  Receipt Date: 20240325
  Transmission Date: 20240409
  Serious: Yes (Death)
  Sender: FDA-Public Use
  Company Number: DE-002147023-NVSC2021DE277399

PATIENT
  Sex: Female
  Weight: 78 kg

DRUGS (7)
  1. FULVESTRANT [Suspect]
     Active Substance: FULVESTRANT
     Indication: Breast cancer metastatic
     Dosage: 500 MG, Q2W (DAILY DOSE), EVERY TWO WEEKS)
     Route: 030
     Dates: start: 20191016, end: 20191112
  2. FULVESTRANT [Suspect]
     Active Substance: FULVESTRANT
     Dosage: 500 MG, Q2W (DAILY DOSE), EVERY TWO WEEKS)
     Route: 030
     Dates: start: 20210504, end: 20210824
  3. FULVESTRANT [Suspect]
     Active Substance: FULVESTRANT
     Dosage: 500 MG, Q4W (DAILY DOSE), EVERY FOUR WEEKS)
     Route: 030
     Dates: start: 20191113, end: 20200922
  4. KISQALI [Suspect]
     Active Substance: RIBOCICLIB
     Indication: Breast cancer metastatic
     Dosage: 600 MG, QD (SCHEMA 21 DAYS INTAKE THEN 7 DAYS PAUSE)
     Route: 048
     Dates: start: 20191016, end: 20200818
  5. KISQALI [Suspect]
     Active Substance: RIBOCICLIB
     Dosage: 600 MG, QD (SCHEMA 21 DAYS INTAKE THEN 7 DAYS PAUSE)
     Route: 048
     Dates: start: 20200826, end: 20210406
  6. KISQALI [Suspect]
     Active Substance: RIBOCICLIB
     Dosage: 600 MG, QD (SCHEMA 21 DAYS INTAKE THEN 7 DAYS PAUSE)
     Route: 048
     Dates: start: 20210414, end: 20210824
  7. LETROZOLE [Suspect]
     Active Substance: LETROZOLE
     Indication: Breast cancer metastatic
     Dosage: 2.5 MG, QD
     Route: 048
     Dates: start: 20200923, end: 20210503

REACTIONS (8)
  - Sepsis [Fatal]
  - Peritonitis [Fatal]
  - Multiple organ dysfunction syndrome [Fatal]
  - Gastroenteritis [Fatal]
  - Spontaneous bacterial peritonitis [Fatal]
  - Ileus [Fatal]
  - Impaired gastric emptying [Fatal]
  - Ileus paralytic [Fatal]

NARRATIVE: CASE EVENT DATE: 20211129
